FAERS Safety Report 8899702 (Version 1)
Quarter: 2012Q4

REPORT INFORMATION
  Report Type: 
  Country: US (occurrence: US)
  Receive Date: 20121109
  Receipt Date: 20121109
  Transmission Date: 20130627
  Serious: No
  Sender: FDA-Public Use
  Company Number: US-B.I. PHARMACEUTICALS,INC./RIDGEFIELD-2012-BP-27423BP

PATIENT
  Sex: Female

DRUGS (8)
  1. SPIRIVA [Suspect]
     Indication: CHRONIC OBSTRUCTIVE PULMONARY DISEASE
     Dosage: 18 mcg
     Route: 055
     Dates: start: 2010
  2. METOPROLOL [Concomitant]
     Indication: HYPERTENSION
     Dosage: 200 mg
     Route: 048
     Dates: start: 2010
  3. DILTIAZEM [Concomitant]
     Indication: HYPERTENSION
     Dosage: 120 mg
     Route: 048
     Dates: start: 2010
  4. URSO [Concomitant]
     Indication: CHOLELITHIASIS
     Dosage: 500 mg
     Route: 048
     Dates: start: 2010
  5. WARFARIN [Concomitant]
     Indication: ATRIAL FIBRILLATION
     Dosage: 2 mg
     Route: 048
     Dates: start: 2010
  6. DIGOXIN [Concomitant]
     Indication: ATRIAL FIBRILLATION
     Dosage: 125 mcg
     Route: 048
     Dates: start: 2010
  7. SYNTHROID [Concomitant]
     Indication: HYPOTHYROIDISM
     Dosage: 75 mcg
     Route: 048
     Dates: start: 2012
  8. LASIX [Concomitant]
     Indication: PULMONARY OEDEMA
     Dosage: 2 mg
     Route: 048
     Dates: start: 2010

REACTIONS (1)
  - Chromatopsia [Recovered/Resolved]
